FAERS Safety Report 9120533 (Version 2)
Quarter: 2015Q2

REPORT INFORMATION
  Report Type: Spontaneous
  Country: DE (occurrence: DE)
  Receive Date: 20130226
  Receipt Date: 20150417
  Transmission Date: 20150821
  Serious: Yes (Other)
  Sender: FDA-Public Use
  Company Number: DE-ROCHE-1194633

PATIENT
  Age: 67 Year
  Sex: Female

DRUGS (5)
  1. LUCENTIS [Suspect]
     Active Substance: RANIBIZUMAB
     Dosage: 28 INJECTIONS IN ONE EYE
     Route: 050
     Dates: start: 2011
  2. LUCENTIS [Suspect]
     Active Substance: RANIBIZUMAB
     Dosage: THREE INJECTIONS IN FOUR WEEK INTERVALS
     Route: 050
     Dates: start: 2012
  3. LUCENTIS [Suspect]
     Active Substance: RANIBIZUMAB
     Route: 050
     Dates: start: 20121207
  4. LUCENTIS [Suspect]
     Active Substance: RANIBIZUMAB
     Route: 050
     Dates: start: 201211
  5. LUCENTIS [Suspect]
     Active Substance: RANIBIZUMAB
     Indication: AGE-RELATED MACULAR DEGENERATION
     Dosage: 1 DF (10 MG/ML), RIGHT EYE (3 INJECTIONS)
     Route: 050
     Dates: start: 2010

REACTIONS (7)
  - Intervertebral disc protrusion [Unknown]
  - Hypersensitivity [Unknown]
  - Intraocular pressure fluctuation [Unknown]
  - Circulatory collapse [Unknown]
  - Atonic urinary bladder [Not Recovered/Not Resolved]
  - Malaise [Unknown]
  - Drug ineffective [Unknown]

NARRATIVE: CASE EVENT DATE: 2010
